FAERS Safety Report 7893637 (Version 3)
Quarter: 2013Q4

REPORT INFORMATION
  Report Type: Spontaneous
  Country: JP (occurrence: JP)
  Receive Date: 20110411
  Receipt Date: 20131028
  Transmission Date: 20140711
  Serious: Yes (Other)
  Sender: FDA-Public Use
  Company Number: JP-PFIZER INC-2011076035

PATIENT
  Sex: 0

DRUGS (3)
  1. AMIODARONE HCL [Suspect]
     Dosage: UNK
  2. METHOTREXATE SODIUM [Suspect]
     Dosage: UNK
  3. MESALAZINE [Concomitant]
     Dosage: UNK

REACTIONS (1)
  - Lung disorder [Recovering/Resolving]
